FAERS Safety Report 11867712 (Version 5)
Quarter: 2016Q1

REPORT INFORMATION
  Report Type: Spontaneous
  Country: US (occurrence: US)
  Receive Date: 20151224
  Receipt Date: 20160129
  Transmission Date: 20160526
  Serious: Yes (Death)
  Sender: FDA-Public Use
  Company Number: US-FRESENIUS MEDICAL CARE NORTH AMERICA-1045873

PATIENT
  Age: 69 Year
  Sex: Female
  Weight: 73.4 kg

DRUGS (1)
  1. SODIUM CHLORIDE. [Suspect]
     Active Substance: SODIUM CHLORIDE
     Indication: END STAGE RENAL DISEASE

REACTIONS (2)
  - Post procedural complication [None]
  - Cardiac arrest [Fatal]

NARRATIVE: CASE EVENT DATE: 20141028
